FAERS Safety Report 6083524-3 (Version None)
Quarter: 2009Q1

REPORT INFORMATION
  Report Type: 
  Country: None (occurrence: None)
  Receive Date: 20090219
  Receipt Date: 20090205
  Transmission Date: 20090719
  Serious: Yes (Hospitalization, Other)
  Sender: FDA-Public Use
  Company Number: ES-ROCHE-598461

PATIENT
  Sex: Female

DRUGS (6)
  1. MYCOPHENOLATE MOFETIL [Suspect]
     Indication: LIVER TRANSPLANT
     Route: 048
     Dates: start: 20081003
  2. MYCOPHENOLATE MOFETIL [Suspect]
     Dosage: DOSE REDUCED.
     Route: 048
  3. MYCOPHENOLATE MOFETIL [Suspect]
     Dosage: DOSE INCREASED
     Route: 048
  4. TACROLIMUS [Suspect]
     Indication: LIVER TRANSPLANT
     Route: 048
     Dates: start: 20081003
  5. TACROLIMUS [Suspect]
     Dosage: DOSE REDUCED.
     Route: 048
  6. TACROLIMUS [Suspect]
     Dosage: DOSE INCREASED
     Route: 048

REACTIONS (4)
  - BILIARY ISCHAEMIA [None]
  - BILIARY TRACT DISORDER [None]
  - CYTOMEGALOVIRUS INFECTION [None]
  - POST PROCEDURAL COMPLICATION [None]
